FAERS Safety Report 19277520 (Version 1)
Quarter: 2021Q2

REPORT INFORMATION
  Report Type: Other
  Country: JP (occurrence: JP)
  Receive Date: 20210520
  Receipt Date: 20210520
  Transmission Date: 20210717
  Serious: Yes (Death)
  Sender: FDA-Public Use
  Company Number: JP-ROCHE-2830643

PATIENT

DRUGS (2)
  1. BASILIXIMAB [Suspect]
     Active Substance: BASILIXIMAB
     Indication: PROPHYLAXIS AGAINST TRANSPLANT REJECTION
     Route: 065
  2. MYCOPHENOLATE MOFETIL. [Suspect]
     Active Substance: MYCOPHENOLATE MOFETIL
     Indication: PROPHYLAXIS AGAINST TRANSPLANT REJECTION
     Route: 065

REACTIONS (2)
  - Neoplasm recurrence [Fatal]
  - Infection [Fatal]
